FAERS Safety Report 8947249 (Version 6)
Quarter: 2014Q2

REPORT INFORMATION
  Report Type: Report from Study
  Country: FR (occurrence: FR)
  Receive Date: 20121205
  Receipt Date: 20140625
  Transmission Date: 20141212
  Serious: Yes (Hospitalization, Other)
  Sender: FDA-Public Use
  Company Number: FR-PFIZER INC-2012231792

PATIENT
  Age: 5 Year
  Sex: Female
  Weight: 22 kg

DRUGS (5)
  1. CRIZOTINIB [Suspect]
     Indication: LYMPHOMA
     Dosage: 280 MG/M2, 2X/DAY
     Route: 048
     Dates: start: 20120807
  2. CRIZOTINIB [Suspect]
     Dosage: 230 MG/M2, 2X/DAY (160 MG MORNING AND EVENING)
     Route: 048
     Dates: start: 20120907
  3. CRIZOTINIB [Suspect]
     Dosage: 165 MG/M2, 2X/DAY
  4. DEXAMETHASONE [Suspect]
     Indication: LYMPHOMA
  5. BACTRIM [Concomitant]
     Dosage: 400 MG, 3 TIMES PER WEEK

REACTIONS (14)
  - Tibia fracture [Recovered/Resolved]
  - Pain in extremity [Recovered/Resolved]
  - Neutropenia [Recovered/Resolved]
  - Transaminases increased [Recovered/Resolved]
  - Keratosis pilaris [Recovered/Resolved]
  - Xerosis [Recovered/Resolved]
  - Dry eye [Not Recovered/Not Resolved]
  - Groin pain [Unknown]
  - Femoral neck fracture [Recovered/Resolved]
  - Pruritus [Recovered/Resolved]
  - Performance status decreased [Unknown]
  - Rash [Recovered/Resolved]
  - Transaminases increased [Unknown]
  - Gait disturbance [Recovered/Resolved]
